FAERS Safety Report 7665302-4 (Version None)
Quarter: 2011Q3

REPORT INFORMATION
  Report Type: 
  Country: None (occurrence: None)
  Receive Date: 20110806
  Receipt Date: 20110518
  Transmission Date: 20111222
  Serious: No
  Sender: FDA-Public Use
  Company Number: US-ABBOTT-11P-163-0727342-00

PATIENT
  Sex: Female

DRUGS (9)
  1. NIASPAN [Suspect]
     Indication: BLOOD CHOLESTEROL INCREASED
     Dates: start: 20110512, end: 20110514
  2. OMEPRAZOLE [Concomitant]
     Indication: DYSPEPSIA
  3. ENALAPRIL MALEATE [Concomitant]
     Indication: PRODUCT USED FOR UNKNOWN INDICATION
  4. NITROGLYCERIN [Concomitant]
     Indication: CHEST PAIN
     Dosage: 1 PILL UNDER THE TONGUE
  5. METFORMIN HCL [Concomitant]
     Indication: DIABETES MELLITUS
  6. LIPITOR [Concomitant]
     Indication: BLOOD CHOLESTEROL INCREASED
  7. PLAVIX [Concomitant]
     Indication: ANTICOAGULANT THERAPY
  8. CARVEDILOL [Concomitant]
     Indication: PRODUCT USED FOR UNKNOWN INDICATION
  9. GLIPIZIDE [Concomitant]
     Indication: DIABETES MELLITUS

REACTIONS (5)
  - FEELING HOT [None]
  - PRURITUS [None]
  - DRUG DOSE OMISSION [None]
  - PAIN IN EXTREMITY [None]
  - VEIN DISORDER [None]
